FAERS Safety Report 7102509-9 (Version None)
Quarter: 2010Q4

REPORT INFORMATION
  Report Type: 
  Country: None (occurrence: None)
  Receive Date: 20101115
  Receipt Date: 20101104
  Transmission Date: 20110411
  Serious: Yes (Other)
  Sender: FDA-Public Use
  Company Number: JP-JNJFOC-20101101854

PATIENT
  Sex: Female
  Weight: 57 kg

DRUGS (18)
  1. DOXIL [Suspect]
     Indication: OVARIAN CANCER RECURRENT
     Route: 042
  2. DOXIL [Suspect]
     Route: 042
  3. IODINE [Concomitant]
     Indication: PROPHYLAXIS
     Route: 049
  4. MUCOSTA [Concomitant]
     Indication: PROPHYLAXIS
     Route: 048
  5. GASTER [Concomitant]
     Route: 048
  6. GLYCYRON [Concomitant]
     Route: 048
  7. AMINO ACID INJ [Concomitant]
     Route: 042
  8. PRIMPERAN [Concomitant]
     Route: 042
  9. PRIMPERAN [Concomitant]
     Route: 042
  10. LASIX [Concomitant]
     Route: 042
  11. LASIX [Concomitant]
     Route: 042
  12. GASTER [Concomitant]
     Route: 042
  13. FLURBIPROFEN [Concomitant]
     Route: 042
  14. XYLOCAINE [Concomitant]
  15. AZUNOL [Concomitant]
     Route: 049
  16. CEFTRIAXONE SODIUM [Concomitant]
     Indication: PROPHYLAXIS
     Route: 042
  17. AMIKAMYCIN [Concomitant]
     Indication: PROPHYLAXIS
     Route: 042
  18. SOLDEM 3A [Concomitant]
     Route: 042

REACTIONS (2)
  - ASCITES [None]
  - ILEUS [None]
